FAERS Safety Report 18341086 (Version 1)
Quarter: 2020Q4

REPORT INFORMATION
  Report Type: Spontaneous
  Country: FR (occurrence: FR)
  Receive Date: 20201003
  Receipt Date: 20201003
  Transmission Date: 20210113
  Serious: Yes (Other)
  Sender: FDA-Public Use
  Company Number: FR-ACCORD-203902

PATIENT
  Age: 69 Year
  Sex: Male
  Weight: 51.3 kg

DRUGS (13)
  1. VIMPAT [Concomitant]
     Active Substance: LACOSAMIDE
  2. LOXAPAC [Concomitant]
     Active Substance: LOXAPINE
  3. TAMSULOSIN/TAMSULOSIN HYDROCHLORIDE [Concomitant]
     Active Substance: TAMSULOSIN HYDROCHLORIDE
  4. CIRCADIN [Concomitant]
     Active Substance: MELATONIN
  5. FINASTERIDE ACCORD [Suspect]
     Active Substance: FINASTERIDE
     Indication: BENIGN PROSTATIC HYPERPLASIA
     Dosage: STRENGTH: 5 MG
     Route: 048
     Dates: start: 20200731, end: 20200828
  6. TEGRETOL [Suspect]
     Active Substance: CARBAMAZEPINE
     Indication: EPILEPSY
     Route: 048
  7. ELUDRIL [Concomitant]
  8. MIDAZOLAM ACCORD [Suspect]
     Active Substance: MIDAZOLAM HYDROCHLORIDE
     Indication: SEDATIVE THERAPY
     Route: 030
     Dates: start: 20200803, end: 20200829
  9. PERINDOPRIL [Concomitant]
     Active Substance: PERINDOPRIL
  10. SERESTA [Concomitant]
     Active Substance: OXAZEPAM
  11. CLOZAPINE MYLAN [Suspect]
     Active Substance: CLOZAPINE
     Indication: PSYCHOTIC DISORDER
     Dosage: STRENGTH: 25 MG, SCORED TABLET
     Route: 048
     Dates: start: 20200731, end: 20200828
  12. KARDEGIC [Concomitant]
     Active Substance: ASPIRIN DL-LYSINE
  13. MOVICOL [Concomitant]
     Active Substance: POLYETHYLENE GLYCOL 3350\POTASSIUM CHLORIDE\SODIUM BICARBONATE\SODIUM CHLORIDE

REACTIONS (2)
  - Cholestasis [Recovering/Resolving]
  - Hepatocellular injury [Recovering/Resolving]

NARRATIVE: CASE EVENT DATE: 20200828
